APPROVED DRUG PRODUCT: ZINC SULFATE
Active Ingredient: ZINC SULFATE
Strength: EQ 10MG BASE/10ML (EQ 1MG BASE/ML)
Dosage Form/Route: SOLUTION;INTRAVENOUS
Application: A216249 | Product #003 | TE Code: AP
Applicant: GLAND PHARMA LTD
Approved: Sep 1, 2023 | RLD: No | RS: No | Type: RX